FAERS Safety Report 8258036-9 (Version None)
Quarter: 2012Q2

REPORT INFORMATION
  Report Type: 
  Country: None (occurrence: None)
  Receive Date: 20120404
  Receipt Date: 20120323
  Transmission Date: 20120825
  Serious: Yes (Hospitalization, Other)
  Sender: FDA-Public Use
  Company Number: GB-JNJFOC-20120312850

PATIENT
  Sex: Female

DRUGS (2)
  1. NICOTINE [Suspect]
     Route: 062
  2. NICOTINE [Suspect]
     Indication: SMOKING CESSATION THERAPY
     Route: 062

REACTIONS (5)
  - MATERNAL EXPOSURE DURING PREGNANCY [None]
  - ADVERSE REACTION [None]
  - STILLBIRTH [None]
  - ABORTION SPONTANEOUS [None]
  - APPLICATION SITE REACTION [None]
